FAERS Safety Report 8471040-0 (Version None)
Quarter: 2012Q2

REPORT INFORMATION
  Report Type: 
  Country: None (occurrence: None)
  Receive Date: 20120627
  Receipt Date: 20120619
  Transmission Date: 20120825
  Serious: Yes (Hospitalization)
  Sender: FDA-Public Use
  Company Number: JP-B.I. PHARMACEUTICALS,INC./RIDGEFIELD-2012-BP-09427NB

PATIENT
  Sex: Male
  Weight: 66 kg

DRUGS (7)
  1. PRADAXA [Suspect]
     Indication: ATRIAL FIBRILLATION
     Dosage: 220 MG
     Route: 048
  2. URSO 250 [Concomitant]
     Dosage: 600 MG
     Route: 065
  3. AMLODIPINE [Concomitant]
     Dosage: 2.5 MG
     Route: 065
  4. BISOPROLOL FUMARATE [Concomitant]
     Dosage: 2.5 MG
     Route: 065
  5. GLYCYRON [Concomitant]
     Route: 065
  6. BEPRICOR [Concomitant]
     Indication: SINUS RHYTHM
     Dosage: 150 MG
     Route: 065
     Dates: start: 20120404, end: 20120413
  7. OLMETEC [Concomitant]
     Dosage: 20 MG
     Route: 065

REACTIONS (3)
  - TRANSIENT ISCHAEMIC ATTACK [None]
  - LATERAL MEDULLARY SYNDROME [None]
  - CEREBRAL INFARCTION [None]
